FAERS Safety Report 9735246 (Version 2)
Quarter: 2014Q2

REPORT INFORMATION
  Report Type: Spontaneous
  Country: IT (occurrence: IT)
  Receive Date: 20131206
  Receipt Date: 20140411
  Transmission Date: 20141212
  Serious: Yes (Hospitalization)
  Sender: FDA-Public Use
  Company Number: IT-SA-2013SA123978

PATIENT
  Age: 85 Year
  Sex: Male

DRUGS (4)
  1. ZARIVIZ [Suspect]
     Indication: LUNG ABSCESS
     Route: 042
     Dates: start: 20131010, end: 20131019
  2. LEVOXACIN [Suspect]
     Indication: LUNG ABSCESS
     Route: 042
     Dates: start: 20131014, end: 20131019
  3. DALACIN FOSFATO [Suspect]
     Indication: LUNG ABSCESS
     Route: 042
     Dates: start: 20131011, end: 20131019
  4. TAZOCIN [Concomitant]
     Indication: LUNG ABSCESS
     Dosage: STRENGTH: 4 G + 500MG
     Dates: start: 20131019, end: 20131028

REACTIONS (2)
  - Haematoma [Recovered/Resolved]
  - Pruritus [Recovered/Resolved]
